FAERS Safety Report 9193956 (Version 2)
Quarter: 2013Q2

REPORT INFORMATION
  Report Type: Spontaneous
  Country: JP (occurrence: JP)
  Receive Date: 20130327
  Receipt Date: 20130401
  Transmission Date: 20140414
  Serious: Yes (Other)
  Sender: FDA-Public Use
  Company Number: CHNY2013JP000858

PATIENT
  Sex: Male

DRUGS (1)
  1. PURSENNID [Suspect]
     Indication: CONSTIPATION
     Dosage: UNK, UNK
     Route: 048

REACTIONS (1)
  - Hypokalaemia [Recovered/Resolved]
